FAERS Safety Report 7425302-6 (Version None)
Quarter: 2011Q2

REPORT INFORMATION
  Report Type: 
  Country: None (occurrence: None)
  Receive Date: 20110420
  Receipt Date: 20100113
  Transmission Date: 20111010
  Serious: No
  Sender: FDA-Public Use
  Company Number: US-BAYER-201011245NA

PATIENT
  Age: 33 Year
  Sex: Female
  Weight: 78.005 kg

DRUGS (2)
  1. YAZ [Suspect]
     Indication: CONTRACEPTION
     Dosage: UNK UNK, QD
     Dates: start: 20090101, end: 20090901
  2. YAZ [Suspect]
     Dosage: UNK
     Dates: start: 20091201

REACTIONS (3)
  - VAGINAL HAEMORRHAGE [None]
  - METRORRHAGIA [None]
  - GENITAL HAEMORRHAGE [None]
